FAERS Safety Report 10076669 (Version 1)
Quarter: 2014Q2

REPORT INFORMATION
  Report Type: Spontaneous
  Country: FR (occurrence: FR)
  Receive Date: 20140414
  Receipt Date: 20140414
  Transmission Date: 20141212
  Serious: Yes (Hospitalization)
  Sender: FDA-Public Use
  Company Number: FR-LUNDBECK-DKLU1099167

PATIENT
  Age: 45 Year
  Sex: Male

DRUGS (5)
  1. URBANYL [Suspect]
     Indication: EPILEPSY
     Route: 048
     Dates: start: 201401, end: 201401
  2. URBANYL [Suspect]
     Route: 048
  3. KEPPRA [Suspect]
     Indication: EPILEPSY
     Route: 048
     Dates: start: 201211
  4. KEPPRA [Suspect]
     Route: 048
  5. KEPPRA [Suspect]
     Route: 048

REACTIONS (5)
  - Asthenia [Not Recovered/Not Resolved]
  - Altered state of consciousness [Not Recovered/Not Resolved]
  - Vision blurred [Not Recovered/Not Resolved]
  - Dizziness [Not Recovered/Not Resolved]
  - Decreased appetite [Not Recovered/Not Resolved]
